FAERS Safety Report 9373348 (Version 2)
Quarter: 2013Q3

REPORT INFORMATION
  Report Type: Report from Study
  Country: US (occurrence: US)
  Receive Date: 20130627
  Receipt Date: 20130726
  Transmission Date: 20140515
  Serious: Yes (Other)
  Sender: FDA-Public Use
  Company Number: US-ABBOTT-13P-163-1108736-00

PATIENT
  Sex: Female
  Weight: 67.65 kg

DRUGS (6)
  1. HUMIRA [Suspect]
     Indication: RHEUMATOID ARTHRITIS
     Route: 058
  2. LISINOPRIL [Concomitant]
     Indication: HYPERTENSION
  3. COLACE [Concomitant]
     Indication: PRODUCT USED FOR UNKNOWN INDICATION
     Dosage: AS NEEDED
  4. ATIVAN [Concomitant]
     Indication: PRODUCT USED FOR UNKNOWN INDICATION
  5. CITRACAL PLUS BONE DENSITY BUILDER [Concomitant]
     Indication: PRODUCT USED FOR UNKNOWN INDICATION
  6. TUBERCULIN ALLERGY SYRINGE [Concomitant]
     Indication: PRODUCT USED FOR UNKNOWN INDICATION
     Dosage: USE AS DIRECTED

REACTIONS (18)
  - Gallbladder non-functioning [Unknown]
  - Drug ineffective [Unknown]
  - Alopecia [Unknown]
  - Alopecia [Unknown]
  - Nausea [Recovered/Resolved]
  - Abdominal pain [Recovered/Resolved]
  - Blood cholesterol increased [Unknown]
  - Rheumatoid arthritis [Unknown]
  - Rheumatoid arthritis [Recovering/Resolving]
  - Oesophageal stenosis [Unknown]
  - Weight decreased [Unknown]
  - Hypophagia [Unknown]
  - Hypothyroidism [Unknown]
  - Osteoarthritis [Unknown]
  - Osteopenia [Unknown]
  - Carpal tunnel syndrome [Unknown]
  - Mammogram abnormal [Unknown]
  - Constipation [Unknown]
